FAERS Safety Report 6535008-3 (Version None)
Quarter: 2010Q1

REPORT INFORMATION
  Report Type: 
  Country: None (occurrence: None)
  Receive Date: 20100111
  Receipt Date: 20100111
  Transmission Date: 20100710
  Serious: Yes (Death)
  Sender: FDA-Public Use
  Company Number: None

PATIENT
  Age: 48 Year
  Sex: Male
  Weight: 40.5 kg

DRUGS (2)
  1. TRUVADA [Suspect]
     Indication: HIV INFECTION
     Dosage: 200/300 MILLIGRAMS QD ORAL
     Route: 048
     Dates: start: 20090529, end: 20091220
  2. EFAVIRENZ [Suspect]
     Indication: HIV INFECTION
     Dosage: 600 MILLIGRAMS QD ORAL
     Route: 048
     Dates: start: 20090529, end: 20091220

REACTIONS (5)
  - ALANINE AMINOTRANSFERASE DECREASED [None]
  - BLOOD BILIRUBIN INCREASED [None]
  - BLOOD SODIUM DECREASED [None]
  - COMMUNICATION DISORDER [None]
  - HAEMOGLOBIN DECREASED [None]
